FAERS Safety Report 6816405-5 (Version None)
Quarter: 2010Q3

REPORT INFORMATION
  Report Type: 
  Country: None (occurrence: None)
  Receive Date: 20100705
  Receipt Date: 20100630
  Transmission Date: 20110219
  Serious: Yes (Death)
  Sender: FDA-Public Use
  Company Number: PHHY2010CA39454

PATIENT
  Sex: Female

DRUGS (7)
  1. ALISKIREN ALI+ [Suspect]
     Indication: HYPERTENSION
     Dosage: 150 MG, DAILY
     Route: 048
     Dates: end: 20091014
  2. ADALAT [Concomitant]
     Dosage: 60 G, UNK
  3. CALCITE [Concomitant]
     Dosage: UNK
  4. ASPIRIN [Concomitant]
  5. COVERSYL PLUS [Concomitant]
  6. ATENOLOL [Concomitant]
     Dosage: 100 MG, UNK
  7. FOSAMAX [Concomitant]
     Dosage: 70 G, UNK

REACTIONS (1)
  - HEPATIC NEOPLASM MALIGNANT [None]
